FAERS Safety Report 11745975 (Version 1)
Quarter: 2015Q4

REPORT INFORMATION
  Report Type: Spontaneous
  Country: US (occurrence: None)
  Receive Date: 20151116
  Receipt Date: 20151116
  Transmission Date: 20160304
  Serious: Yes (Life-Threatening)
  Sender: FDA-Public Use
  Company Number: None

PATIENT
  Age: 3 Year
  Sex: Male
  Weight: 16 kg

DRUGS (1)
  1. XOLAIR [Suspect]
     Active Substance: OMALIZUMAB
     Indication: MASTOIDITIS
     Route: 058
     Dates: start: 20150721

REACTIONS (3)
  - Salivary hypersecretion [None]
  - Wheezing [None]
  - Respiratory distress [None]

NARRATIVE: CASE EVENT DATE: 20150721
